FAERS Safety Report 11697174 (Version 1)
Quarter: 2015Q4

REPORT INFORMATION
  Report Type: Spontaneous
  Country: US (occurrence: US)
  Receive Date: 20151104
  Receipt Date: 20151104
  Transmission Date: 20160304
  Serious: No
  Sender: FDA-Public Use
  Company Number: US-ASTRAZENECA-2015SF03237

PATIENT
  Age: 87 Year
  Sex: Male
  Weight: 68 kg

DRUGS (3)
  1. ALBUTEROL. [Concomitant]
     Active Substance: ALBUTEROL
     Indication: INHALATION THERAPY
     Dosage: TWO INHALATIONS 3 OR 4 TIMES PER DAY AS NEEDED
     Route: 055
     Dates: start: 201505
  2. LASIX [Concomitant]
     Active Substance: FUROSEMIDE
     Indication: PLEURAL EFFUSION
     Route: 048
     Dates: start: 201506
  3. TUDORZA PRESSAIR [Suspect]
     Active Substance: ACLIDINIUM BROMIDE
     Indication: ASTHMA
     Route: 055
     Dates: start: 20151019

REACTIONS (5)
  - Peripheral swelling [Unknown]
  - Drug dose omission [Unknown]
  - Pleural effusion [Unknown]
  - Product use issue [Unknown]
  - Device defective [Unknown]

NARRATIVE: CASE EVENT DATE: 2015
